FAERS Safety Report 6474216-7 (Version None)
Quarter: 2009Q4

REPORT INFORMATION
  Report Type: 
  Country: None (occurrence: None)
  Receive Date: 20091204
  Receipt Date: 20091124
  Transmission Date: 20100525
  Serious: Yes (Hospitalization)
  Sender: FDA-Public Use
  Company Number: ES-ELI_LILLY_AND_COMPANY-ES200911006773

PATIENT
  Age: 76 Year
  Sex: Female

DRUGS (6)
  1. FORTEO [Suspect]
     Indication: OSTEOPOROSIS
     Dosage: 20 UG, UNK
     Route: 058
     Dates: start: 20090401
  2. COAPROVEL [Concomitant]
  3. OMEPRAZOLE [Concomitant]
  4. AMLODIPINO                         /00972401/ [Concomitant]
  5. ADIRO [Concomitant]
  6. LORAZEPAM [Concomitant]

REACTIONS (3)
  - CONTUSION [None]
  - FALL [None]
  - FRACTURE [None]
